FAERS Safety Report 5236993-2 (Version None)
Quarter: 2007Q1

REPORT INFORMATION
  Report Type: 
  Country: None (occurrence: None)
  Receive Date: 20070213
  Receipt Date: 20070202
  Transmission Date: 20070707
  Serious: Yes (Hospitalization, Other)
  Sender: FDA-Public Use
  Company Number: DE-JNJFOC-20070201061

PATIENT
  Age: 7 Decade
  Weight: 66 kg

DRUGS (1)
  1. INFLIXIMAB [Suspect]
     Indication: INFLAMMATION
     Route: 042

REACTIONS (1)
  - DIVERTICULITIS [None]
